FAERS Safety Report 10184565 (Version 2)
Quarter: 2014Q2

REPORT INFORMATION
  Report Type: Spontaneous
  Country: US (occurrence: US)
  Receive Date: 20140521
  Receipt Date: 20140620
  Transmission Date: 20141212
  Serious: Yes (Hospitalization)
  Sender: FDA-Public Use
  Company Number: US-BEH-2014042558

PATIENT
  Age: 50 Year
  Sex: Female
  Weight: 104 kg

DRUGS (38)
  1. HIZENTRA [Suspect]
     Indication: HYPOGAMMAGLOBULINAEMIA
     Route: 058
     Dates: start: 20140505
  2. HIZENTRA [Suspect]
     Dates: start: 20140527
  3. HIZENTRA [Suspect]
     Dosage: LAST HOME INFUSION JUN-2013
  4. ADREN-ALL [Concomitant]
     Indication: ADRENAL DISORDER
     Dosage: 2 CAPS
     Route: 048
     Dates: start: 20130812
  5. ADVAIR [Concomitant]
     Indication: ASTHMA
     Dosage: 1 PUFF
     Route: 055
     Dates: start: 20121114
  6. BENADRYL [Concomitant]
     Indication: PREMEDICATION
     Route: 048
  7. CARAFATE [Concomitant]
     Dosage: BEFORE MEALS AND BEDTIME
     Route: 048
     Dates: start: 20140530
  8. DHEA [Concomitant]
     Route: 060
     Dates: start: 20130226
  9. FOSAMAX/ALDENDRONATE [Concomitant]
     Dosage: THURSDAY AM
     Route: 048
     Dates: start: 20121115
  10. LEVOTHYROXINE [Concomitant]
     Dosage: QAM
     Route: 048
     Dates: start: 20130422
  11. LISINOPRIL [Concomitant]
     Indication: HYPERTENSION
     Dosage: QAM
     Route: 048
     Dates: start: 20121115
  12. LOVASTATIN/MEVACOR [Concomitant]
     Dosage: QHS
     Route: 048
     Dates: start: 20120921
  13. MULTIVITES CHEWABLE GUMMIES [Concomitant]
     Dosage: 2QAM
     Route: 048
  14. NEXIUM [Concomitant]
     Indication: GASTROOESOPHAGEAL REFLUX DISEASE
     Dosage: QAM
     Route: 048
     Dates: start: 20120815
  15. OVEGA-3 [Concomitant]
     Dosage: 2 CAPS
     Route: 048
     Dates: start: 20130305
  16. PROBIOTIC [Concomitant]
     Dosage: 1 CAP
     Route: 048
     Dates: start: 20130221
  17. PROGESTERONE ER [Concomitant]
     Indication: HORMONE REPLACEMENT THERAPY
     Dosage: QHS
     Dates: start: 20130812
  18. SEROQUEL/QUETIAPINE [Concomitant]
     Indication: AFFECTIVE DISORDER
     Route: 048
     Dates: start: 20130123
  19. SINGULAIR/MONTELUKAST [Concomitant]
     Indication: HYPERSENSITIVITY
     Dosage: QHS
     Route: 048
     Dates: start: 20140408
  20. SPIRIVA [Concomitant]
     Indication: ASTHMA
     Dosage: 1 PUFF QAM
     Route: 055
     Dates: start: 20121114
  21. TESTOSTERONE CREAM [Concomitant]
     Indication: HORMONE REPLACEMENT THERAPY
     Route: 061
  22. VITAMIN C [Concomitant]
     Indication: OSTEOPOROSIS
     Dosage: QAM
     Route: 048
     Dates: start: 20121115
  23. VITAMIN D2 [Concomitant]
     Dosage: 1 THURSDAY AM
     Route: 048
     Dates: start: 20121115
  24. ZYRTEC/CETIRIZINE [Concomitant]
     Indication: HYPERSENSITIVITY
     Dosage: QHS
     Route: 048
     Dates: start: 20041124
  25. ALBUTEROL [Concomitant]
     Dosage: 2.5 MG/3 ML Q 3-6 HOURS
     Route: 055
  26. ANTIPYRINE-BENZOCAINE [Concomitant]
     Indication: EAR PAIN
     Dosage: 6 DROP EAR Q4 HOURS
     Route: 061
  27. ATROVENT/IPRATROPIUM [Concomitant]
     Dosage: 0.5 MG/2.5 ML Q 3-6 HOURS
  28. BENADRYL [Concomitant]
     Indication: HYPERSENSITIVITY
     Dosage: 1-2
     Route: 048
  29. CILOXAN [Concomitant]
     Dosage: QHS
     Route: 047
  30. EPIPEN [Concomitant]
  31. LIDOCAINE [Concomitant]
     Indication: HYPERSENSITIVITY
     Dosage: Q2-4 HOURS PRN
  32. MARINOL/DRONABINOL/THC [Concomitant]
     Indication: NAUSEA
     Route: 048
  33. MARINOL/DRONABINOL/THC [Concomitant]
     Indication: VOMITING
     Route: 048
  34. MOTRIN [Concomitant]
     Dosage: 3-4 TIMES DAILY
  35. NORCO [Concomitant]
     Indication: PAIN
     Dosage: 5-325, 1-2 TABS Q6 HRS
  36. VALIUM/DIAZEPAM [Concomitant]
     Dosage: PRN
     Route: 048
  37. ZOFRAN/ONDANSETRON [Concomitant]
     Indication: NAUSEA
     Dosage: PRN
  38. ZOFRAN/ONDANSETRON [Concomitant]
     Indication: VOMITING
     Dosage: PRN

REACTIONS (3)
  - Bronchial hyperreactivity [Recovering/Resolving]
  - Respiratory tract infection [Recovering/Resolving]
  - Asthma [Recovering/Resolving]
